FAERS Safety Report 5807582-3 (Version None)
Quarter: 2008Q3

REPORT INFORMATION
  Report Type: 
  Country: None (occurrence: None)
  Receive Date: 20080711
  Receipt Date: 20080703
  Transmission Date: 20090109
  Serious: Yes (Hospitalization)
  Sender: FDA-Public Use
  Company Number: GB-ROCHE-574385

PATIENT
  Age: 69 Year
  Sex: Female
  Weight: 51.9 kg

DRUGS (8)
  1. BONIVA [Suspect]
     Indication: OSTEOPOROSIS
     Route: 042
     Dates: start: 20070501, end: 20080101
  2. CALCITRIOL [Concomitant]
     Indication: OSTEOPOROSIS
  3. DURAGESIC-100 [Concomitant]
  4. FRUMIL [Concomitant]
  5. OMEPRAZOLE [Concomitant]
  6. ACETAMINOPHEN [Concomitant]
  7. QUININE [Concomitant]
  8. WARFARIN SODIUM [Concomitant]
     Indication: DEEP VEIN THROMBOSIS

REACTIONS (4)
  - CHILLS [None]
  - CONVULSION [None]
  - HYPERHIDROSIS [None]
  - TREMOR [None]
